FAERS Safety Report 23374827 (Version 2)
Quarter: 2024Q2

REPORT INFORMATION
  Report Type: Spontaneous
  Country: ES (occurrence: ES)
  Receive Date: 20240106
  Receipt Date: 20240402
  Transmission Date: 20240716
  Serious: Yes (Life-Threatening, Hospitalization, Other)
  Sender: FDA-Public Use
  Company Number: ES-002147023-NVSC2020ES206671

PATIENT
  Age: 56 Year
  Sex: Female

DRUGS (22)
  1. AMPHOTERICIN B [Suspect]
     Active Substance: AMPHOTERICIN B
     Indication: Candida infection
     Dosage: UNK
     Route: 065
  2. AMPHOTERICIN B [Suspect]
     Active Substance: AMPHOTERICIN B
     Indication: Emphysematous pyelonephritis
     Dosage: UNK
     Route: 065
  3. CASPOFUNGIN [Suspect]
     Active Substance: CASPOFUNGIN
     Indication: Emphysematous pyelonephritis
     Dosage: UNK
     Route: 042
  4. CASPOFUNGIN [Suspect]
     Active Substance: CASPOFUNGIN
     Indication: Candida infection
  5. CASPOFUNGIN [Suspect]
     Active Substance: CASPOFUNGIN
     Indication: Pyelonephritis fungal
  6. CASPOFUNGIN ACETATE [Suspect]
     Active Substance: CASPOFUNGIN ACETATE
     Indication: Pyelonephritis fungal
     Dosage: UNK
     Route: 042
  7. EMPAGLIFLOZIN [Suspect]
     Active Substance: EMPAGLIFLOZIN
     Indication: Diabetes mellitus
     Dosage: UNK
     Route: 065
  8. ENVARSUS XR [Suspect]
     Active Substance: TACROLIMUS
     Indication: Immunosuppressant drug therapy
     Dosage: UNK
     Route: 065
  9. ENVARSUS XR [Suspect]
     Active Substance: TACROLIMUS
     Indication: Renal transplant
     Dosage: UNK
     Route: 065
  10. MYCOPHENOLATE MOFETIL [Suspect]
     Active Substance: MYCOPHENOLATE MOFETIL
     Indication: Renal transplant
     Dosage: UNK
     Route: 065
  11. MYCOPHENOLATE MOFETIL [Suspect]
     Active Substance: MYCOPHENOLATE MOFETIL
     Indication: Immunosuppressant drug therapy
  12. METHYLPREDNISOLONE [Suspect]
     Active Substance: METHYLPREDNISOLONE
     Indication: Histology abnormal
     Dosage: UNK
     Route: 042
  13. METHYLPREDNISOLONE [Suspect]
     Active Substance: METHYLPREDNISOLONE
     Indication: Renal transplant
     Dosage: UNK
     Route: 042
  14. PREDNISONE [Suspect]
     Active Substance: PREDNISONE
     Indication: Immunosuppressant drug therapy
     Dosage: UNK
     Route: 065
  15. PREDNISONE [Suspect]
     Active Substance: PREDNISONE
     Indication: Renal transplant
     Dosage: UNK
     Route: 065
  16. THYMOGLOBULIN [Suspect]
     Active Substance: LAPINE T-LYMPHOCYTE IMMUNE GLOBULIN
     Indication: Immunosuppressant drug therapy
     Dosage: UNK
     Route: 042
  17. THYMOGLOBULIN [Suspect]
     Active Substance: LAPINE T-LYMPHOCYTE IMMUNE GLOBULIN
     Indication: Histology abnormal
     Dosage: UNK
     Route: 065
  18. THYMOGLOBULIN [Suspect]
     Active Substance: LAPINE T-LYMPHOCYTE IMMUNE GLOBULIN
     Indication: Renal transplant
     Dosage: UNK
     Route: 065
  19. INSULIN NOS [Concomitant]
     Active Substance: INSULIN NOS
     Indication: Diabetes mellitus
     Dosage: UNK, UNKNOWN
     Route: 065
  20. MEROPENEM [Concomitant]
     Active Substance: MEROPENEM
     Indication: Product used for unknown indication
     Dosage: UNK
     Route: 065
  21. PIPERACILLIN SODIUM\TAZOBACTAM SODIUM [Concomitant]
     Active Substance: PIPERACILLIN SODIUM\TAZOBACTAM SODIUM
     Indication: Emphysematous pyelonephritis
     Dosage: UNK
     Route: 065
  22. PIPERACILLIN SODIUM\TAZOBACTAM SODIUM [Concomitant]
     Active Substance: PIPERACILLIN SODIUM\TAZOBACTAM SODIUM
     Indication: Evidence based treatment

REACTIONS (33)
  - Emphysematous pyelonephritis [Recovered/Resolved]
  - Candida infection [Recovered/Resolved]
  - Candida sepsis [Recovered/Resolved]
  - Urinary tract infection enterococcal [Recovered/Resolved]
  - Drug ineffective [Unknown]
  - Septic shock [Recovered/Resolved]
  - Pyelonephritis fungal [Recovering/Resolving]
  - Perinephric abscess [Recovered/Resolved]
  - Coagulation test abnormal [Recovered/Resolved]
  - Systemic candida [Recovered/Resolved]
  - Renal impairment [Unknown]
  - Oliguria [Unknown]
  - Coagulopathy [Recovered/Resolved]
  - Hypotension [Recovered/Resolved]
  - Vesicoureteric reflux [Unknown]
  - Urinary tract candidiasis [Recovered/Resolved]
  - Urinary tract infection [Recovered/Resolved]
  - Therapy non-responder [Unknown]
  - Product use in unapproved indication [Unknown]
  - Dysuria [Unknown]
  - Chills [Recovering/Resolving]
  - Candida sepsis [Recovered/Resolved]
  - Pyelonephritis acute [Recovering/Resolving]
  - Pain [Recovering/Resolving]
  - Pyuria [Recovered/Resolved]
  - Pyelonephritis acute [Recovering/Resolving]
  - Abdominal pain [Recovering/Resolving]
  - Tachycardia [Recovering/Resolving]
  - Tenderness [Recovering/Resolving]
  - Pyrexia [Recovered/Resolved]
  - Malaise [Recovering/Resolving]
  - Urinary tract infection enterococcal [Unknown]
  - Vesicoureteric reflux [Unknown]
